FAERS Safety Report 19719316 (Version 2)
Quarter: 2021Q3

REPORT INFORMATION
  Report Type: Spontaneous
  Country: US (occurrence: US)
  Receive Date: 20210819
  Receipt Date: 20210909
  Transmission Date: 20211014
  Serious: Yes (Disabling)
  Sender: FDA-Public Use
  Company Number: US-BIOVITRUM-2021US1531

PATIENT
  Sex: Female

DRUGS (1)
  1. KINERET [Suspect]
     Active Substance: ANAKINRA
     Indication: RHEUMATOID ARTHRITIS
     Route: 058
     Dates: start: 20210121

REACTIONS (8)
  - Wrist deformity [Unknown]
  - Pain [Unknown]
  - Sinusitis [Unknown]
  - Injection site pain [Unknown]
  - Myalgia [Unknown]
  - Illness [Unknown]
  - Product dose omission issue [Unknown]
  - Muscular weakness [Unknown]
